FAERS Safety Report 6217271-1 (Version None)
Quarter: 2009Q2

REPORT INFORMATION
  Report Type: 
  Country: None (occurrence: None)
  Receive Date: 20090604
  Receipt Date: 20090604
  Transmission Date: 20091009
  Serious: No
  Sender: FDA-Public Use
  Company Number: None

PATIENT
  Sex: Female
  Weight: 66.2252 kg

DRUGS (6)
  1. BENICAR HCT [Suspect]
     Indication: HYPERTENSION
     Dosage: 40/25  1 PO
     Route: 048
     Dates: start: 20090428, end: 20090526
  2. PREMARIN [Concomitant]
  3. MULTI-VITAMIN [Concomitant]
  4. CA++ [Concomitant]
  5. VERAMYST [Concomitant]
  6. ACETAMINOPHEN [Concomitant]

REACTIONS (4)
  - BURNING SENSATION [None]
  - LIP SWELLING [None]
  - SWELLING FACE [None]
  - THROAT TIGHTNESS [None]
